FAERS Safety Report 9325502 (Version 1)
Quarter: 2013Q2

REPORT INFORMATION
  Report Type: Spontaneous
  Country: US (occurrence: None)
  Receive Date: 20130528
  Receipt Date: 20130528
  Transmission Date: 20140414
  Serious: Yes (Hospitalization)
  Sender: FDA-Public Use
  Company Number: USA/USA/13/0029653

PATIENT
  Age: 14 Year
  Sex: Male

DRUGS (5)
  1. TACROLIMUS (TACROLIMUS) [Suspect]
     Indication: IMMUNOSUPPRESSION
  2. RIFAMPIN [Suspect]
     Indication: LATENT TUBERCULOSIS
  3. KETOCONAZOLE [Suspect]
     Indication: PRODUCT USED FOR UNKNOWN INDICATION
  4. MYCOPHENOLATE MOFETIL [Suspect]
     Indication: IMMUNOSUPPRESSION
  5. METHYLPREDNISOLONE [Suspect]
     Indication: IMMUNOSUPPRESSION

REACTIONS (7)
  - Drug interaction [None]
  - Drug level below therapeutic [None]
  - Electrocardiogram QT prolonged [None]
  - Latent tuberculosis [None]
  - Pneumonia [None]
  - Renal failure acute [None]
  - Renal tubular necrosis [None]
